FAERS Safety Report 23351186 (Version 1)
Quarter: 2023Q4

REPORT INFORMATION
  Report Type: Spontaneous
  Country: US (occurrence: None)
  Receive Date: 20231228
  Receipt Date: 20231228
  Transmission Date: 20240109
  Serious: Yes (Hospitalization)
  Sender: FDA-Public Use
  Company Number: None

PATIENT
  Age: 22 Year
  Sex: Male

DRUGS (22)
  1. TOBRAMYCIN [Suspect]
     Active Substance: TOBRAMYCIN
     Indication: Product used for unknown indication
     Dosage: OTHER QUANTITY : 300MG/5ML;?FREQUENCY : AS DIRECTED;?
     Route: 055
     Dates: start: 20230915
  2. ALBUTEROL [Concomitant]
     Active Substance: ALBUTEROL
  3. AMOX/K CLAV TAB [Concomitant]
  4. ATROVENT HFA AER [Concomitant]
  5. AZITHROMYCIN [Concomitant]
     Active Substance: AZITHROMYCIN
  6. BUDESONIDE SUS [Concomitant]
  7. CIPRO/DEXA SUS [Concomitant]
  8. CIPROFLOXACIN SOL [Concomitant]
  9. CLOBAZAM [Concomitant]
     Active Substance: CLOBAZAM
  10. CLONAZEP ODT [Concomitant]
  11. CLOTRIMAZOLE SOL [Concomitant]
  12. EPIDIOLEX SOL [Concomitant]
  13. ERYTHROMYCIN OIN [Concomitant]
  14. MELATONIN TAB [Concomitant]
  15. MYLICON DRO [Concomitant]
  16. PREDNISONE [Concomitant]
     Active Substance: PREDNISONE
  17. PULMICORT SUS [Concomitant]
  18. SULFAMETHOXAZOLE\TRIMETHOPRIM [Concomitant]
     Active Substance: SULFAMETHOXAZOLE\TRIMETHOPRIM
  19. SYMBICORT AER [Concomitant]
  20. SYNAGIS [Concomitant]
     Active Substance: PALIVIZUMAB
  21. SYNAGIS [Concomitant]
     Active Substance: PALIVIZUMAB
  22. VITAMIN D [Concomitant]
     Active Substance: VITAMIN D NOS

REACTIONS (2)
  - Pneumonia [None]
  - Rhinovirus infection [None]

NARRATIVE: CASE EVENT DATE: 20231225
